FAERS Safety Report 5254777-6 (Version None)
Quarter: 2007Q1

REPORT INFORMATION
  Report Type: 
  Country: None (occurrence: None)
  Receive Date: 20070305
  Receipt Date: 20070223
  Transmission Date: 20070707
  Serious: Yes (Hospitalization)
  Sender: FDA-Public Use
  Company Number: US-JNJFOC-20061201335

PATIENT
  Sex: Female
  Weight: 163.3 kg

DRUGS (19)
  1. DURAGESIC [Suspect]
     Route: 062
  2. DURAGESIC [Suspect]
     Route: 062
  3. DURAGESIC [Suspect]
     Indication: PAIN MANAGEMENT
     Route: 062
  4. PERCOCET [Concomitant]
     Dosage: 10/325
     Route: 048
  5. LEXAPRO [Concomitant]
     Indication: DEPRESSION
     Route: 065
  6. TRAZODONE HCL [Concomitant]
     Indication: RELAXATION THERAPY
     Route: 048
  7. SEROQUEL [Concomitant]
     Indication: ANXIETY
     Route: 048
  8. NEURONTIN [Concomitant]
  9. NEXIUM [Concomitant]
  10. RELAFEN [Concomitant]
  11. IMITREX [Concomitant]
     Route: 058
  12. TRAZODONE HCL [Concomitant]
     Route: 048
  13. SINGULAIR [Concomitant]
     Route: 048
  14. FLONASE [Concomitant]
     Route: 055
  15. PATANOL [Concomitant]
  16. ALBUTEROL [Concomitant]
     Route: 055
  17. CLARITIN [Concomitant]
     Route: 048
  18. DETROL LA [Concomitant]
     Route: 048
  19. CELEXA [Concomitant]
     Route: 048

REACTIONS (4)
  - ANKLE FRACTURE [None]
  - DRUG INEFFECTIVE [None]
  - FALL [None]
  - FRACTURE DISPLACEMENT [None]
